FAERS Safety Report 10524436 (Version 11)
Quarter: 2015Q2

REPORT INFORMATION
  Report Type: Spontaneous
  Country: US (occurrence: US)
  Receive Date: 20141017
  Receipt Date: 20150409
  Transmission Date: 20150821
  Serious: Yes (Hospitalization, Other)
  Sender: FDA-Public Use
  Company Number: US-SA-2013SA125783

PATIENT
  Age: 74 Year
  Sex: Male

DRUGS (16)
  1. LOTENSIN [Concomitant]
     Active Substance: BENAZEPRIL HYDROCHLORIDE
  2. COREG [Concomitant]
     Active Substance: CARVEDILOL
     Route: 048
  3. BENAZEPRIL [Concomitant]
     Active Substance: BENAZEPRIL\BENAZEPRIL HYDROCHLORIDE
     Route: 048
  4. AVAPRO [Concomitant]
     Active Substance: IRBESARTAN
  5. AVANDIA [Concomitant]
     Active Substance: ROSIGLITAZONE MALEATE
  6. PLAVIX [Suspect]
     Active Substance: CLOPIDOGREL BISULFATE
     Indication: STENT PLACEMENT
     Route: 065
     Dates: start: 200911, end: 20101228
  7. ASPIRIN. [Suspect]
     Active Substance: ASPIRIN
     Route: 048
     Dates: start: 20090413, end: 201012
  8. ZOCOR [Concomitant]
     Active Substance: SIMVASTATIN
     Route: 048
  9. GLUCOTROL [Concomitant]
     Active Substance: GLIPIZIDE
     Route: 048
  10. NORVASC [Concomitant]
     Active Substance: AMLODIPINE BESYLATE
     Route: 048
  11. NORVASC [Concomitant]
     Active Substance: AMLODIPINE BESYLATE
  12. METFORMIN [Concomitant]
     Active Substance: METFORMIN HYDROCHLORIDE
  13. ASPIRIN. [Suspect]
     Active Substance: ASPIRIN
     Route: 048
  14. GLUCOTROL [Concomitant]
     Active Substance: GLIPIZIDE
  15. JANUVIA [Concomitant]
     Active Substance: SITAGLIPTIN PHOSPHATE
  16. ADALAT [Concomitant]
     Active Substance: NIFEDIPINE

REACTIONS (4)
  - Multiple injuries [Unknown]
  - Gastrointestinal haemorrhage [Not Recovered/Not Resolved]
  - Melaena [Not Recovered/Not Resolved]
  - Chronic gastritis [Unknown]

NARRATIVE: CASE EVENT DATE: 20101228
